FAERS Safety Report 8171284-1 (Version None)
Quarter: 2012Q1

REPORT INFORMATION
  Report Type: 
  Country: None (occurrence: None)
  Receive Date: 20120228
  Receipt Date: 20120213
  Transmission Date: 20120608
  Serious: Yes (Other)
  Sender: FDA-Public Use
  Company Number: CA-WATSON-2012-02843

PATIENT
  Age: 7 Year
  Sex: Female

DRUGS (4)
  1. PREDNISONE TAB [Suspect]
     Dosage: ^5 DAY COURSE^
     Route: 048
  2. METHOTREXATE [Suspect]
  3. FOLIC ACID [Suspect]
     Indication: IMMUNOSUPPRESSION
     Dosage: 1 MG, DAILY
     Route: 065
  4. PREDNISONE TAB [Suspect]
     Indication: IMMUNOSUPPRESSION
     Dosage: 25 MG, DAILY
     Route: 048

REACTIONS (1)
  - PNEUMONIA [None]
